FAERS Safety Report 16393128 (Version 3)
Quarter: 2019Q3

REPORT INFORMATION
  Report Type: Report from Study
  Country: None (occurrence: US)
  Receive Date: 20190605
  Receipt Date: 20190719
  Transmission Date: 20191004
  Serious: Yes (Other)
  Sender: FDA-Public Use
  Company Number: US-ABBVIE-19S-163-2803855-00

PATIENT
  Sex: Male
  Weight: 54.48 kg

DRUGS (1)
  1. CREON [Suspect]
     Active Substance: PANCRELIPASE AMYLASE\PANCRELIPASE LIPASE\PANCRELIPASE PROTEASE
     Indication: PANCREATITIS CHRONIC
     Dosage: WITH MEALS
     Route: 048
     Dates: start: 2014

REACTIONS (5)
  - Hip fracture [Recovered/Resolved]
  - Pancreatitis [Unknown]
  - Jaw operation [Unknown]
  - Fall [Recovered/Resolved]
  - Limb prosthesis user [Unknown]

NARRATIVE: CASE EVENT DATE: 2016
